FAERS Safety Report 8207553-6 (Version None)
Quarter: 2012Q1

REPORT INFORMATION
  Report Type: 
  Country: None (occurrence: None)
  Receive Date: 20120313
  Receipt Date: 20120313
  Transmission Date: 20120608
  Serious: Yes (Hospitalization)
  Sender: FDA-Public Use
  Company Number: None

PATIENT
  Sex: Male
  Weight: 70 kg

DRUGS (2)
  1. CARBOPLATIN [Suspect]
     Indication: LUNG NEOPLASM MALIGNANT
     Dosage: 834 MG Q 21 DAYS INTRAVENOUS
     Route: 042
     Dates: start: 20120119, end: 20120229
  2. PACLITAXEL [Suspect]
     Indication: LUNG NEOPLASM MALIGNANT
     Dosage: 285 MG Q 21 DAYS INTRAVENOUS
     Route: 042
     Dates: start: 20120119, end: 20120229

REACTIONS (1)
  - FEBRILE NEUTROPENIA [None]
